FAERS Safety Report 23057216 (Version 1)
Quarter: 2023Q4

REPORT INFORMATION
  Report Type: Spontaneous
  Country: PT (occurrence: PT)
  Receive Date: 20231012
  Receipt Date: 20231012
  Transmission Date: 20240110
  Serious: Yes (Death, Other)
  Sender: FDA-Public Use
  Company Number: PT-EMA-DD-20230911-7180175-112305

PATIENT
  Age: 48 Year
  Sex: Female

DRUGS (14)
  1. FLUOROURACIL [Suspect]
     Active Substance: FLUOROURACIL
     Indication: Colon cancer metastatic
     Dosage: AS 5-FLUOROURACIL-BEVACIZUMAB
  2. IRINOTECAN [Suspect]
     Active Substance: IRINOTECAN
     Indication: Colon cancer metastatic
     Dosage: AS FOLFIRI (LEUCOVORIN, FLUOROURACIL AND IRINOTECAN) WITH PANITUMUMAB
  3. OXALIPLATIN [Suspect]
     Active Substance: OXALIPLATIN
     Indication: Colon cancer metastatic
     Dosage: AS FOLFOX-BEVACIZUMAB (LEUCOVORIN,  FLUOROURACIL, OXALIPLATIN, BEVACIZUMAB)
  4. PANITUMUMAB [Suspect]
     Active Substance: PANITUMUMAB
     Indication: Colon cancer metastatic
     Dosage: AS DE GRAMMOND-PANITUMUMAB REGIMEN (LEUCOVORIN, FLUOROURACIL, OXALIPLATIN, PANITUMUMAB)
  5. BEVACIZUMAB [Suspect]
     Active Substance: BEVACIZUMAB
     Indication: Colon cancer metastatic
     Dosage: AS FOLFOX-BEVACIZUMAB (LEUCOVORIN,  FLUOROURACIL, OXALIPLATIN, BEVACIZUMAB)
  6. LEUCOVORIN [Suspect]
     Active Substance: LEUCOVORIN\LEUCOVORIN CALCIUM
     Indication: Colon cancer metastatic
     Dosage: AS FOLFOX-BEVACIZUMAB (LEUCOVORIN,  FLUOROURACIL, OXALIPLATIN, BEVACIZUMAB)
  7. FOLIC ACID [Concomitant]
     Active Substance: FOLIC ACID
     Dosage: 5 MILLIGRAM, QD
  8. PANITUMUMAB [Suspect]
     Active Substance: PANITUMUMAB
     Indication: Colon cancer metastatic
     Dosage: AS FOLFIRI (LEUCOVORIN, FLUOROURACIL AND IRINOTECAN) WITH PANITUMUMAB
  9. BEVACIZUMAB [Suspect]
     Active Substance: BEVACIZUMAB
     Indication: Colon cancer metastatic
     Dosage: AS 5-FLUOROURACIL-BEVACIZUMAB
  10. FLUOROURACIL [Suspect]
     Active Substance: FLUOROURACIL
     Indication: Colon cancer metastatic
     Dosage: AS DE GRAMMOND-PANITUMUMAB REGIMEN (LEUCOVORIN, FLUOROURACIL, OXALIPLATIN, PANITUMUMAB
  11. FLUOROURACIL [Suspect]
     Active Substance: FLUOROURACIL
     Indication: Colon cancer metastatic
     Dosage: AS FOLFOX-BEVACIZUMAB (LEUCOVORIN, FLUOROURACIL, OXALIPLATIN, BEVACIZUMAB)
  12. LEUCOVORIN [Suspect]
     Active Substance: LEUCOVORIN\LEUCOVORIN CALCIUM
     Indication: Colon cancer metastatic
     Dosage: AS FOLFIRI (LEUCOVORIN, FLUOROURACIL AND IRINOTECAN) WITH PANITUMUMAB
  13. LEUCOVORIN [Suspect]
     Active Substance: LEUCOVORIN\LEUCOVORIN CALCIUM
     Indication: Colon cancer metastatic
     Dosage: DE GRAMMOND-PANITUMUMAB REGIMEN (LEUCOVORIN, FLUOROURACIL, OXALIPLATIN, PANITUMUMAB)
  14. OXALIPLATIN [Suspect]
     Active Substance: OXALIPLATIN
     Indication: Colon cancer metastatic
     Dosage: AS DE GRAMMOND-PANITUMUMAB REGIMEN (LEUCOVORIN, FLUOROURACIL, OXALIPLATIN, PANITUMUMAB)

REACTIONS (4)
  - Metastases to liver [Unknown]
  - Colon cancer metastatic [Unknown]
  - Metastases to lymph nodes [Unknown]
  - Death [Fatal]
